FAERS Safety Report 18031783 (Version 1)
Quarter: 2020Q3

REPORT INFORMATION
  Report Type: Spontaneous
  Country: JP (occurrence: JP)
  Receive Date: 20200716
  Receipt Date: 20200716
  Transmission Date: 20201103
  Serious: Yes (Other)
  Sender: FDA-Public Use
  Company Number: JP-ABBVIE-17K-087-2060489-00

PATIENT
  Age: 71 Year
  Sex: Male

DRUGS (1)
  1. DUODOPA [Suspect]
     Active Substance: CARBIDOPA\LEVODOPA
     Indication: PARKINSON^S DISEASE
     Route: 050
     Dates: start: 20170714

REACTIONS (16)
  - Feeding disorder [Unknown]
  - Asthenia [Unknown]
  - Constipation [Recovered/Resolved]
  - Skin irritation [Recovered/Resolved]
  - Malaise [Recovered/Resolved]
  - Incorrect route of product administration [Unknown]
  - Rash [Unknown]
  - Device physical property issue [Unknown]
  - Eye movement disorder [Unknown]
  - Wrong technique in device usage process [Unknown]
  - Tracheostomy [Unknown]
  - Stoma site extravasation [Unknown]
  - Device occlusion [Unknown]
  - Tremor [Unknown]
  - Stoma site irritation [Unknown]
  - Device issue [Unknown]

NARRATIVE: CASE EVENT DATE: 201707
